FAERS Safety Report 14923516 (Version 2)
Quarter: 2018Q2

REPORT INFORMATION
  Report Type: Spontaneous
  Country: US (occurrence: US)
  Receive Date: 20180522
  Receipt Date: 20180618
  Transmission Date: 20180711
  Serious: Yes (Other)
  Sender: FDA-Public Use
  Company Number: US-COOPERSURGICAL, INC.-US-2018CPS031961

PATIENT
  Age: 43 Year
  Sex: Female
  Weight: 63.49 kg

DRUGS (1)
  1. PARAGARD T 380A [Suspect]
     Active Substance: COPPER
     Indication: CONTRACEPTION
     Dosage: UNK
     Route: 015
     Dates: start: 2007, end: 20170522

REACTIONS (5)
  - Device breakage [None]
  - Pelvic inflammatory disease [Recovered/Resolved]
  - Device use issue [Unknown]
  - Menstruation irregular [Recovered/Resolved]
  - Device material issue [Unknown]

NARRATIVE: CASE EVENT DATE: 201701
